FAERS Safety Report 11632723 (Version 4)
Quarter: 2015Q4

REPORT INFORMATION
  Report Type: Spontaneous
  Country: IT (occurrence: IT)
  Receive Date: 20151015
  Receipt Date: 20151126
  Transmission Date: 20160304
  Serious: Yes (Death)
  Sender: FDA-Public Use
  Company Number: IT-JNJFOC-20151008764

PATIENT
  Age: 61 Year
  Sex: Male
  Weight: 63 kg

DRUGS (7)
  1. OLYSIO [Suspect]
     Active Substance: SIMEPREVIR
     Indication: HEPATITIS C ANTIBODY POSITIVE
     Route: 048
     Dates: start: 20150626, end: 20150917
  2. SOVALDI [Suspect]
     Active Substance: SOFOSBUVIR
     Indication: HEPATITIS C ANTIBODY POSITIVE
     Route: 048
     Dates: start: 20150626, end: 20150917
  3. REBETOL [Suspect]
     Active Substance: RIBAVIRIN
     Indication: HEPATITIS C
     Route: 048
     Dates: start: 20150626, end: 20150917
  4. KANRENOL [Concomitant]
     Active Substance: CANRENOATE POTASSIUM
     Indication: HYPERALDOSTERONISM
     Dosage: 1+1/2 TABLETS DAILY
     Route: 048
  5. HELIXATE FS [Concomitant]
     Active Substance: ANTIHEMOPHILIC FACTOR, HUMAN RECOMBINANT
     Route: 042
  6. INDERAL [Concomitant]
     Active Substance: PROPRANOLOL HYDROCHLORIDE
     Indication: PORTAL HYPERTENSION
     Dosage: 1/2 TABLET+1/4 TABLET
     Route: 048
  7. MEPRAL [Concomitant]
     Active Substance: OMEPRAZOLE SODIUM
     Dosage: 1 TABLET
     Route: 065

REACTIONS (1)
  - Death [Fatal]

NARRATIVE: CASE EVENT DATE: 20150926
